FAERS Safety Report 6312614-2 (Version None)
Quarter: 2009Q3

REPORT INFORMATION
  Report Type: 
  Country: None (occurrence: None)
  Receive Date: 20090813
  Receipt Date: 20090810
  Transmission Date: 20100115
  Serious: Yes (Disabling)
  Sender: FDA-Public Use
  Company Number: 348784

PATIENT
  Sex: Male

DRUGS (1)
  1. BUPIVACAINE [Suspect]
     Indication: ANAESTHESIA
     Dosage: CONTINUOUS INJECTION
     Dates: start: 20061001

REACTIONS (3)
  - CHONDROLYSIS [None]
  - JOINT RANGE OF MOTION DECREASED [None]
  - MUSCULOSKELETAL PAIN [None]
